FAERS Safety Report 6465239-2 (Version None)
Quarter: 2009Q4

REPORT INFORMATION
  Report Type: 
  Country: None (occurrence: None)
  Receive Date: 20091124
  Receipt Date: 20091102
  Transmission Date: 20100525
  Serious: Yes (Hospitalization, Other)
  Sender: FDA-Public Use
  Company Number: JPI-P-009091

PATIENT
  Age: 1 Day
  Sex: Female

DRUGS (4)
  1. LUVOX [Suspect]
     Indication: DRUG EXPOSURE DURING PREGNANCY
     Dosage: TRANSPLACENTAL; (75 MG,1 D),TRANSPLACENTAL; (50 MG,1 D),TRANSPLACENTAL
     Route: 064
     Dates: end: 20090101
  2. LUVOX [Suspect]
     Indication: DRUG EXPOSURE DURING PREGNANCY
     Dosage: TRANSPLACENTAL; (75 MG,1 D),TRANSPLACENTAL; (50 MG,1 D),TRANSPLACENTAL
     Route: 064
     Dates: start: 20090114, end: 20090301
  3. CLONAZEPAM [Suspect]
     Indication: DRUG EXPOSURE DURING PREGNANCY
     Dosage: (2 MG, 1 D),TRANSPLACENTAL; (4 MG, 1 D),TRANSPLACENTAL
     Route: 064
     Dates: start: 20090501, end: 20090612
  4. CLONAZEPAM [Suspect]
     Indication: DRUG EXPOSURE DURING PREGNANCY
     Dosage: (2 MG, 1 D),TRANSPLACENTAL; (4 MG, 1 D),TRANSPLACENTAL
     Route: 064
     Dates: start: 20090613

REACTIONS (4)
  - HYPOTONIA NEONATAL [None]
  - MATERNAL DRUGS AFFECTING FOETUS [None]
  - RESPIRATORY DISORDER NEONATAL [None]
  - SOMNOLENCE NEONATAL [None]
